FAERS Safety Report 25176840 (Version 1)
Quarter: 2025Q2

REPORT INFORMATION
  Report Type: Report from Study
  Country: DE (occurrence: DE)
  Receive Date: 20250409
  Receipt Date: 20250409
  Transmission Date: 20250717
  Serious: Yes (Disabling, Other)
  Sender: ALIMERA
  Company Number: DE-ALIMERA SCIENCES LIMITED-DE-IL-2017-003357

PATIENT
  Sex: Female

DRUGS (19)
  1. ILUVIEN [Suspect]
     Active Substance: FLUOCINOLONE ACETONIDE
     Indication: Diabetic retinal oedema
     Dosage: 0.25 MICROGRAM, QD - RIGHT EYE
     Route: 031
     Dates: start: 20140916
  2. LATANOPROST [Concomitant]
     Active Substance: LATANOPROST
     Indication: Glaucoma
     Dates: start: 200105
  3. DORZOLAMIDE HYDROCHLORIDE\TIMOLOL MALEATE [Concomitant]
     Active Substance: DORZOLAMIDE HYDROCHLORIDE\TIMOLOL MALEATE
     Indication: Glaucoma
     Dates: start: 200210
  4. Voltaren Ophta Eye Drops [Concomitant]
     Indication: Macular oedema
     Dates: start: 20150907
  5. PREDNISOLONE [Concomitant]
     Active Substance: PREDNISOLONE
     Indication: Rheumatic disorder
     Dates: start: 2000
  6. Fosavance 70 [Concomitant]
     Indication: Osteoporosis
  7. Ossofortin Forte [Concomitant]
     Indication: Osteoporosis
  8. Metex [Concomitant]
     Indication: Rheumatic disorder
  9. FALITHROM [Concomitant]
     Active Substance: PHENPROCOUMON
     Indication: Anticoagulant therapy
     Dates: start: 200602
  10. LEVOTHYROXINE SODIUM [Concomitant]
     Active Substance: LEVOTHYROXINE SODIUM
     Indication: Thyroid disorder
  11. OMEPRAZOLE [Concomitant]
     Active Substance: OMEPRAZOLE
     Indication: Product used for unknown indication
  12. GLIMEPIRIDE [Concomitant]
     Active Substance: GLIMEPIRIDE
     Indication: Diabetes mellitus
     Dates: start: 1995
  13. METOPROLOL SUCCINATE [Concomitant]
     Active Substance: METOPROLOL SUCCINATE
     Indication: Hypertonia
     Dates: start: 2000
  14. RAMIPRIL [Concomitant]
     Active Substance: RAMIPRIL
     Indication: Hypertonia
     Dates: start: 2000
  15. HCT ISIS [Concomitant]
     Indication: Hypertonia
     Dates: start: 2000
  16. AMLOLICH [Concomitant]
     Indication: Hypertonia
     Dates: start: 2000
  17. FOLCUR [Concomitant]
     Indication: Folate deficiency
  18. Simva 20 [Concomitant]
     Indication: Hyperlipidaemia
  19. DORZOLAMIDE HYDROCHLORIDE\TIMOLOL MALEATE [Concomitant]
     Active Substance: DORZOLAMIDE HYDROCHLORIDE\TIMOLOL MALEATE
     Indication: Glaucoma
     Dates: start: 200210, end: 20160916

REACTIONS (3)
  - Iris neovascularisation [Not Recovered/Not Resolved]
  - Blindness [Recovered/Resolved]
  - Glaucoma [Recovered/Resolved]

NARRATIVE: CASE EVENT DATE: 20160518
